FAERS Safety Report 9220338 (Version 1)
Quarter: 2013Q1

REPORT INFORMATION
  Report Type: Spontaneous
  Country: US (occurrence: None)
  Receive Date: 20120830
  Receipt Date: 20120830
  Transmission Date: 20140127
  Serious: Yes (Other)
  Sender: FDA-Public Use
  Company Number: PHEH2012US000504

PATIENT
  Age: 42 Year
  Sex: Male

DRUGS (1)
  1. SANDOSTATIN (OCTREOTIDE ACETATE) [Suspect]
     Dosage: 50 UG/ML. BID, SUBCUTANEOUS
     Route: 058

REACTIONS (1)
  - Diarrhoea [None]
